FAERS Safety Report 7618412-1 (Version None)
Quarter: 2011Q3

REPORT INFORMATION
  Report Type: 
  Country: None (occurrence: None)
  Receive Date: 20110718
  Receipt Date: 20110622
  Transmission Date: 20111222
  Serious: No
  Sender: FDA-Public Use
  Company Number: US-B.I. PHARMACEUTICALS,INC./RIDGEFIELD-2011-BP-16104BP

PATIENT
  Age: 50 Year
  Sex: Female

DRUGS (11)
  1. LAMOTRIGINE [Concomitant]
     Indication: CONVULSION
     Dosage: 200 MG
     Route: 048
  2. PREMARIN [Concomitant]
     Indication: OSTEOARTHRITIS
     Dosage: 0.625 MG
     Route: 048
  3. CALCITRIOL [Concomitant]
     Indication: HYPOCALCAEMIA
     Dosage: 200 U
     Route: 048
  4. XOPENEX [Concomitant]
     Indication: ASTHMA
     Dosage: 2 PUF
     Route: 055
  5. ZANAFLEX [Concomitant]
     Indication: CONVULSION
     Dosage: 8 MG
     Route: 048
  6. FENTANYL-100 [Concomitant]
     Indication: OSTEOARTHRITIS
     Dosage: 50 MCG
     Route: 062
  7. VOLTAREN [Concomitant]
     Indication: OSTEOARTHRITIS
     Dosage: 75 MG
     Route: 048
  8. KLONOPIN [Concomitant]
     Indication: CONVULSION
     Dosage: 4 MG
     Route: 048
  9. SPIRIVA [Suspect]
     Indication: ASTHMA
     Dosage: 18 MCG
     Route: 055
  10. SYNTHROID [Concomitant]
     Indication: HYPOTHYROIDISM
     Dosage: 1 MG
     Route: 048
  11. ADVAIR DISKUS 100/50 [Concomitant]
     Indication: ASTHMA
     Route: 055

REACTIONS (2)
  - DRUG INEFFECTIVE [None]
  - ASTHMA [None]
